FAERS Safety Report 5487221-4 (Version None)
Quarter: 2007Q4

REPORT INFORMATION
  Report Type: 
  Country: None (occurrence: None)
  Receive Date: 20071016
  Receipt Date: 20071005
  Transmission Date: 20080405
  Serious: Yes (Hospitalization)
  Sender: FDA-Public Use
  Company Number: US-WYE-H00570907

PATIENT
  Sex: Female
  Weight: 71.28 kg

DRUGS (10)
  1. SIROLIMUS [Suspect]
     Indication: PROPHYLAXIS AGAINST TRANSPLANT REJECTION
     Route: 048
     Dates: end: 20071004
  2. SIROLIMUS [Suspect]
     Dosage: UNSPECIFIED
     Route: 048
     Dates: start: 20071001
  3. FERROUS SULFATE TAB [Concomitant]
     Dosage: UNSPECIFIED
     Dates: start: 20070214, end: 20071003
  4. OXYCODONE HCL [Concomitant]
     Dosage: UNSPECIFIED
     Dates: start: 20070404
  5. AMARYL [Concomitant]
     Dosage: UNSPECIFIED
     Dates: start: 20070706, end: 20071003
  6. ARANESP [Concomitant]
     Dosage: UNSPECIFIED
     Dates: start: 20070806
  7. PERI-COLACE [Concomitant]
     Dosage: PRN
     Dates: start: 20070517, end: 20071003
  8. LASIX [Concomitant]
     Dosage: UNSPECIFIED
     Dates: start: 20070611, end: 20071003
  9. BACTRIM DS [Concomitant]
     Dosage: UNSPECIFIED
     Dates: start: 20010213
  10. DARVOCET [Concomitant]
     Dosage: UNSPECIFIED
     Dates: start: 20070521

REACTIONS (2)
  - MESENTERIC VEIN THROMBOSIS [None]
  - PORTAL VEIN THROMBOSIS [None]
